FAERS Safety Report 5285761-4 (Version None)
Quarter: 2007Q1

REPORT INFORMATION
  Report Type: 
  Country: None (occurrence: None)
  Receive Date: 20070128
  Receipt Date: 20061212
  Transmission Date: 20070707
  Serious: No
  Sender: FDA-Public Use
  Company Number: POMP-10910

PATIENT
  Age: 3 Month
  Sex: Female
  Weight: 5.7 kg

DRUGS (2)
  1. MYOZYME [Suspect]
     Indication: GLYCOGEN STORAGE DISEASE TYPE II
     Dosage: 150 MG Q2WKS IV
     Route: 042
     Dates: start: 20061101, end: 20061212
  2. MYOZYME [Suspect]
     Indication: GLYCOGEN STORAGE DISEASE TYPE II
     Dosage: 200 MG Q2WKS IV
     Route: 042
     Dates: start: 20061212

REACTIONS (2)
  - NASAL FLARING [None]
  - OXYGEN SATURATION DECREASED [None]
